FAERS Safety Report 6969498-9 (Version None)
Quarter: 2010Q3

REPORT INFORMATION
  Report Type: 
  Country: None (occurrence: None)
  Receive Date: 20100907
  Receipt Date: 20100907
  Transmission Date: 20110219
  Serious: No
  Sender: FDA-Public Use
  Company Number: None

PATIENT
  Sex: Male
  Weight: 74.1 kg

DRUGS (3)
  1. CARBOPLATIN [Suspect]
     Dosage: 1441 MG
     Dates: end: 20100215
  2. ERBITUX [Suspect]
     Dosage: 2633 MG
     Dates: end: 20100222
  3. TAXOL [Suspect]
     Dosage: 752 MG
     Dates: end: 20100215

REACTIONS (6)
  - DERMATITIS ACNEIFORM [None]
  - ERYTHEMA [None]
  - NEUTROPHIL COUNT DECREASED [None]
  - PYREXIA [None]
  - SKIN EXFOLIATION [None]
  - SKIN TOXICITY [None]
